FAERS Safety Report 17558845 (Version 2)
Quarter: 2020Q2

REPORT INFORMATION
  Report Type: Spontaneous
  Country: JP (occurrence: JP)
  Receive Date: 20200319
  Receipt Date: 20200604
  Transmission Date: 20200713
  Serious: Yes (Other)
  Sender: FDA-Public Use
  Company Number: JP-ALK-ABELLO A/S-2020AA000928

PATIENT

DRUGS (1)
  1. MITICURE [Suspect]
     Active Substance: DERMATOPHAGOIDES FARINAE\DERMATOPHAGOIDES PTERONYSSINUS
     Indication: PRODUCT USED FOR UNKNOWN INDICATION
     Route: 060

REACTIONS (1)
  - Surgery [Unknown]
